FAERS Safety Report 7669833-2 (Version None)
Quarter: 2011Q3

REPORT INFORMATION
  Report Type: 
  Country: None (occurrence: None)
  Receive Date: 20110808
  Receipt Date: 20110726
  Transmission Date: 20111222
  Serious: Yes (Other)
  Sender: FDA-Public Use
  Company Number: FR-NOVOPROD-332689

PATIENT

DRUGS (8)
  1. LEVEMIR [Suspect]
     Indication: DIABETES MELLITUS
     Dosage: UNK
     Route: 058
     Dates: start: 20110624, end: 20110629
  2. IPERTEN [Concomitant]
  3. REPAGLINIDE [Concomitant]
  4. PREVISCAN                          /00261401/ [Concomitant]
  5. JANUVIA [Concomitant]
     Dosage: UNK
     Dates: start: 20110624
  6. MEDIATENSYL                        /00631801/ [Concomitant]
  7. OMEXEL [Concomitant]
  8. NEXIUM [Concomitant]

REACTIONS (2)
  - PRURITUS [None]
  - ECZEMA [None]
